FAERS Safety Report 18697349 (Version 1)
Quarter: 2021Q1

REPORT INFORMATION
  Report Type: Spontaneous
  Country: US (occurrence: US)
  Receive Date: 20210104
  Receipt Date: 20210104
  Transmission Date: 20210419
  Serious: No
  Sender: FDA-Public Use
  Company Number: US-009507513-2012USA012850

PATIENT
  Age: 44 Year
  Sex: Female

DRUGS (2)
  1. FOSAMAX [Suspect]
     Active Substance: ALENDRONATE SODIUM
     Indication: HYPERPHOSPHATAEMIA
     Dosage: 35 MILLIGRAM, QW
  2. FOSAMAX [Suspect]
     Active Substance: ALENDRONATE SODIUM
     Indication: ARTHRALGIA

REACTIONS (1)
  - Product use in unapproved indication [Unknown]
